FAERS Safety Report 25892679 (Version 1)
Quarter: 2025Q4

REPORT INFORMATION
  Report Type: Spontaneous
  Country: EU (occurrence: EU)
  Receive Date: 20251007
  Receipt Date: 20251007
  Transmission Date: 20260117
  Serious: Yes (Hospitalization, Other)
  Sender: PFIZER
  Company Number: None

PATIENT
  Age: 51 Year
  Sex: Female
  Weight: 67 kg

DRUGS (4)
  1. ETHINYL ESTRADIOL\LEVONORGESTREL [Suspect]
     Active Substance: ETHINYL ESTRADIOL\LEVONORGESTREL
     Indication: Contraception
     Dosage: UNK UNK, CYCLIC (21 DAYS OUT OF A 28-DAY CYCLE)
     Route: 048
     Dates: start: 1992, end: 2006
  2. DESOGESTREL\ETHINYL ESTRADIOL [Suspect]
     Active Substance: DESOGESTREL\ETHINYL ESTRADIOL
     Indication: Contraception
     Dosage: 1 DF, CYCLIC (21 DAYS OUT OF A 28-DAY CYCLE)
     Route: 048
     Dates: start: 2006, end: 2013
  3. DESOGESTREL\ETHINYL ESTRADIOL [Suspect]
     Active Substance: DESOGESTREL\ETHINYL ESTRADIOL
     Indication: Endometriosis
     Dosage: 1 DF, CYCLIC (21 DAYS OUT OF A 28-DAY CYCLE)
     Route: 048
     Dates: start: 20171205, end: 20180605
  4. DIENOGEST [Suspect]
     Active Substance: DIENOGEST
     Indication: Endometriosis
     Dosage: 1 DF, SINGLE
     Route: 048
     Dates: start: 2019, end: 202211

REACTIONS (1)
  - Meningioma [Not Recovered/Not Resolved]

NARRATIVE: CASE EVENT DATE: 20221125
